FAERS Safety Report 15794554 (Version 1)
Quarter: 2019Q1

REPORT INFORMATION
  Report Type: Spontaneous
  Country: US (occurrence: US)
  Receive Date: 20190106
  Receipt Date: 20190106
  Transmission Date: 20190417
  Serious: Yes (Disabling)
  Sender: FDA-Public Use
  Company Number: None

PATIENT
  Age: 26 Year
  Sex: Female
  Weight: 52.65 kg

DRUGS (1)
  1. BACTIFLOX [Suspect]
     Active Substance: CIPROFLOXACIN HYDROCHLORIDE
     Indication: GASTRITIS BACTERIAL
     Dosage: ?          QUANTITY:10 TABLET(S);?
     Route: 048
     Dates: start: 20181108, end: 20181112

REACTIONS (11)
  - Muscle twitching [None]
  - Confusional state [None]
  - Tremor [None]
  - Paraesthesia [None]
  - Vision blurred [None]
  - Anxiety [None]
  - Chills [None]
  - Feeling cold [None]
  - Pallor [None]
  - Insomnia [None]
  - Panic reaction [None]

NARRATIVE: CASE EVENT DATE: 20181108
